FAERS Safety Report 19608134 (Version 1)
Quarter: 2021Q3

REPORT INFORMATION
  Report Type: Spontaneous
  Country: US (occurrence: US)
  Receive Date: 20210723
  Receipt Date: 20210723
  Transmission Date: 20211014
  Serious: No
  Sender: FDA-Public Use
  Company Number: None

PATIENT
  Age: 34 Year
  Sex: Male
  Weight: 86.4 kg

DRUGS (2)
  1. REGENERON CASIRIVMAB/IMDEVIMAB [Concomitant]
     Dates: start: 20210723, end: 20210723
  2. CASIRIVIMAB AND IMDEVIMAB [Suspect]
     Active Substance: CASIRIVIMAB\IMDEVIMAB

REACTIONS (4)
  - Head discomfort [None]
  - Tremor [None]
  - Abdominal distension [None]
  - Chest discomfort [None]

NARRATIVE: CASE EVENT DATE: 20210723
